FAERS Safety Report 5086460-4 (Version None)
Quarter: 2006Q3

REPORT INFORMATION
  Report Type: 
  Country: None (occurrence: None)
  Receive Date: 20060818
  Receipt Date: 20060803
  Transmission Date: 20061208
  Serious: Yes (Hospitalization)
  Sender: FDA-Public Use
  Company Number: S06-SWI-02669-01

PATIENT
  Age: 36 Year
  Sex: Female
  Weight: 79 kg

DRUGS (4)
  1. CIPRALEX                (ESCITALOPRAM) [Suspect]
     Indication: DEPRESSION
     Dosage: 20 MG QD PO
     Route: 048
     Dates: start: 20040101, end: 20060524
  2. SEROQUEL [Suspect]
     Indication: DEPRESSION
     Dosage: 300 MG QD PO
     Route: 048
     Dates: start: 20050503, end: 20060524
  3. EXJADE [Suspect]
     Indication: CONGENITAL ANAEMIA
     Dosage: 1500 MG QD
     Dates: start: 20060405
  4. EXJADE [Suspect]
     Indication: ERYTHROPOIESIS ABNORMAL
     Dosage: 1500 MG QD
     Dates: start: 20060405

REACTIONS (3)
  - HEPATITIS [None]
  - HEPATOCELLULAR DAMAGE [None]
  - SERUM FERRITIN INCREASED [None]
